FAERS Safety Report 13084674 (Version 1)
Quarter: 2017Q1

REPORT INFORMATION
  Report Type: Report from Study
  Country: DE (occurrence: DE)
  Receive Date: 20170104
  Receipt Date: 20170104
  Transmission Date: 20170428
  Serious: Yes (Other)
  Sender: FDA-Public Use
  Company Number: DE-SA-2017SA000233

PATIENT
  Age: 60 Year

DRUGS (1)
  1. ALEMTUZUMAB [Suspect]
     Active Substance: ALEMTUZUMAB
     Indication: CHRONIC LYMPHOCYTIC LEUKAEMIA
     Dosage: 83 MG CUMULATIVE DOSE, 8 CYCLES. 1 WEEK/CYCLE
     Route: 042

REACTIONS (4)
  - Vasculitis [Recovered/Resolved]
  - Hepatitis [Recovered/Resolved]
  - Infection [Unknown]
  - Pyrexia [Unknown]
